FAERS Safety Report 5320093-7 (Version None)
Quarter: 2007Q1

REPORT INFORMATION
  Report Type: 
  Country: None (occurrence: None)
  Receive Date: 20070215
  Receipt Date: 20060119
  Transmission Date: 20070707
  Serious: Yes (Hospitalization)
  Sender: FDA-Public Use
  Company Number: MC200600100

PATIENT
  Age: 73 Year
  Sex: Female

DRUGS (1)
  1. ANGIOMAX [Suspect]
     Dates: start: 20051001

REACTIONS (2)
  - HAEMATOCRIT DECREASED [None]
  - PAIN IN EXTREMITY [None]
